FAERS Safety Report 25444521 (Version 1)
Quarter: 2025Q2

REPORT INFORMATION
  Report Type: Spontaneous
  Country: FR (occurrence: FR)
  Receive Date: 20250617
  Receipt Date: 20250617
  Transmission Date: 20250716
  Serious: Yes (Hospitalization, Other)
  Sender: SANOFI AVENTIS
  Company Number: None

PATIENT
  Age: 6 Day
  Sex: Female

DRUGS (2)
  1. RIFAMPIN [Suspect]
     Active Substance: RIFAMPIN
     Indication: Antibiotic prophylaxis
     Dosage: 28 MG PER DAY 10 MG/KG/DAY
     Route: 048
     Dates: start: 20250426, end: 20250501
  2. RIMIFON [Suspect]
     Active Substance: ISONIAZID
     Indication: Antibiotic prophylaxis
     Dosage: 28 MG PER DAY 10 MG /KG/DAY
     Route: 048
     Dates: start: 20250426, end: 20250501

REACTIONS (2)
  - Hepatic cytolysis [Recovered/Resolved]
  - Hepatic failure [Recovered/Resolved]

NARRATIVE: CASE EVENT DATE: 20250501
